FAERS Safety Report 16686721 (Version 2)
Quarter: 2022Q1

REPORT INFORMATION
  Report Type: Spontaneous
  Country: FR (occurrence: FR)
  Receive Date: 20190809
  Receipt Date: 20220119
  Transmission Date: 20220424
  Serious: Yes (Other)
  Sender: FDA-Public Use
  Company Number: FR-TEVA-2019-FR-1084250

PATIENT
  Age: 10 Year
  Sex: Female

DRUGS (1)
  1. CETIRIZINE HYDROCHLORIDE [Suspect]
     Active Substance: CETIRIZINE HYDROCHLORIDE
     Indication: Accidental overdose
     Dosage: 10 MG TABLETS 2 DF(0.49MG/KG)
     Route: 048

REACTIONS (6)
  - Confusional state [Unknown]
  - Disorientation [Unknown]
  - Toxicity to various agents [Unknown]
  - Accidental overdose [Unknown]
  - Speech disorder [Unknown]
  - Headache [Unknown]
